FAERS Safety Report 26133335 (Version 1)
Quarter: 2025Q4

REPORT INFORMATION
  Report Type: Spontaneous
  Country: CN (occurrence: CN)
  Receive Date: 20251209
  Receipt Date: 20251209
  Transmission Date: 20260117
  Serious: Yes (Other)
  Sender: ALEXION PHARMACEUTICALS
  Company Number: CN-ASTRAZENECA-202512CHN004298CN

PATIENT
  Age: 81 Year
  Sex: Male
  Weight: 59 kg

DRUGS (3)
  1. BUDESONIDE [Suspect]
     Active Substance: BUDESONIDE
     Indication: Dyspnoea
     Dosage: 2 MILLIGRAM, QD
     Dates: start: 20251109, end: 20251109
  2. ACETYLCYSTEINE [Suspect]
     Active Substance: ACETYLCYSTEINE
     Indication: Dyspnoea
     Dosage: 3 MILLIGRAM, QD
     Dates: start: 20251109, end: 20251109
  3. SODIUM CHLORIDE [Concomitant]
     Active Substance: SODIUM CHLORIDE
     Indication: Solvent sensitivity
     Dosage: 2 MILLILITER, QD
     Dates: start: 20251116, end: 20251116

REACTIONS (2)
  - Heart rate increased [Recovering/Resolving]
  - Dyspnoea [Recovering/Resolving]

NARRATIVE: CASE EVENT DATE: 20251109
